FAERS Safety Report 7391138-8 (Version None)
Quarter: 2011Q1

REPORT INFORMATION
  Report Type: 
  Country: None (occurrence: None)
  Receive Date: 20110324
  Receipt Date: 20110310
  Transmission Date: 20110831
  Serious: Yes (Hospitalization)
  Sender: FDA-Public Use
  Company Number: 2011000966

PATIENT
  Age: 74 Year
  Sex: Female
  Weight: 66.6788 kg

DRUGS (11)
  1. VICODIN [Concomitant]
  2. IPRATROPIUM/ALBUTEROL (IPRATROPIUM) [Concomitant]
  3. SYNTHROID [Concomitant]
  4. POLYETHYLENE GLYCOL [Concomitant]
  5. PAZOPANIB/PLACEBO [Suspect]
     Indication: LUNG CANCER METASTATIC
     Dosage: (600 MG,QD),ORAL
     Route: 048
     Dates: start: 20110124, end: 20110219
  6. PRILOSEC [Concomitant]
  7. MUCINEX [Concomitant]
  8. ERLOTINIB (ERLOTINIB) (TABLET) (ERLOTINIB) [Suspect]
     Indication: LUNG CANCER METASTATIC
     Dosage: (150 MG,QD),ORAL
     Route: 048
     Dates: start: 20110124, end: 20110219
  9. ORAMORPH SR [Concomitant]
  10. HUMALOG [Concomitant]
  11. COMPAZINE [Concomitant]

REACTIONS (6)
  - HYPERGLYCAEMIA [None]
  - CHOLELITHIASIS [None]
  - CEREBROVASCULAR ACCIDENT [None]
  - ENCEPHALOMALACIA [None]
  - HYPERBILIRUBINAEMIA [None]
  - CEREBRAL INFARCTION [None]
